FAERS Safety Report 25598553 (Version 3)
Quarter: 2025Q4

REPORT INFORMATION
  Report Type: Report from Study
  Country: CA (occurrence: CA)
  Receive Date: 20250723
  Receipt Date: 20251106
  Transmission Date: 20260119
  Serious: Yes (Hospitalization, Other)
  Sender: JOHNSON AND JOHNSON
  Company Number: CA-JNJFOC-20240646479

PATIENT
  Age: 42 Year
  Sex: Female
  Weight: 85.28 kg

DRUGS (3)
  1. TREMFYA [Suspect]
     Active Substance: GUSELKUMAB
     Indication: Psoriasis
     Dosage: DATE OF LAST ADMINISTRATION PRIOR TO THE ONSET OF THE EVENT(PELVIC FLOOR COLLAPSE) WAS 06-MAR-2024,
     Route: 065
     Dates: start: 20191223, end: 20241204
  2. TREMFYA [Suspect]
     Active Substance: GUSELKUMAB
     Route: 065
     Dates: start: 20191223, end: 20241204
  3. TREMFYA [Suspect]
     Active Substance: GUSELKUMAB
     Route: 065
     Dates: start: 20191223, end: 20250715

REACTIONS (4)
  - Pelvic floor dysfunction [Recovered/Resolved with Sequelae]
  - Cholestasis [Not Recovered/Not Resolved]
  - Gastroparesis postoperative [Not Recovered/Not Resolved]
  - Dysphonia [Unknown]

NARRATIVE: CASE EVENT DATE: 20240430
